FAERS Safety Report 7555036-9 (Version None)
Quarter: 2011Q2

REPORT INFORMATION
  Report Type: 
  Country: None (occurrence: None)
  Receive Date: 20110617
  Receipt Date: 20110614
  Transmission Date: 20111010
  Serious: Yes (Hospitalization)
  Sender: FDA-Public Use
  Company Number: US-PFIZER INC-2011130889

PATIENT
  Sex: Male
  Weight: 129.25 kg

DRUGS (7)
  1. TOPAMAX [Suspect]
     Indication: HEADACHE
  2. IBUPROFEN [Suspect]
     Indication: PAIN
     Dosage: 1600 MG, UNK
  3. TOPAMAX [Suspect]
     Indication: MIGRAINE
     Dosage: UNK
  4. XANAX [Concomitant]
     Dosage: UNK
  5. SERTRALINE HYDROCHLORIDE [Suspect]
     Indication: DEPRESSION
     Dosage: 50 MG, 1X/DAY
     Route: 048
     Dates: start: 20060101
  6. PERCOCET [Concomitant]
     Dosage: UNK
  7. TENORMIN [Concomitant]
     Dosage: UNK

REACTIONS (1)
  - ARTHROPATHY [None]
